FAERS Safety Report 10470494 (Version 1)
Quarter: 2014Q3

REPORT INFORMATION
  Report Type: Spontaneous
  Country: US (occurrence: None)
  Receive Date: 20140905
  Receipt Date: 20140905
  Transmission Date: 20150326
  Serious: Yes (Hospitalization)
  Sender: FDA-Public Use
  Company Number: A-NJ2014-97815

PATIENT
  Age: 65 Year
  Sex: Male

DRUGS (3)
  1. VELETRI [Suspect]
     Active Substance: EPOPROSTENOL
     Indication: PULMONARY ARTERIAL HYPERTENSION
     Dosage: 10 NG/KG, PER MIN, INTRAVENOUS
     Route: 042
     Dates: start: 201310
  2. COUMADIN [Concomitant]
     Active Substance: WARFARIN SODIUM
  3. REVATIO (SILDENAFIL CITRATE) [Concomitant]

REACTIONS (4)
  - Oedema peripheral [None]
  - Oedema [None]
  - Weight increased [None]
  - Localised oedema [None]

NARRATIVE: CASE EVENT DATE: 20140416
